FAERS Safety Report 5169827-5 (Version None)
Quarter: 2006Q4

REPORT INFORMATION
  Report Type: 
  Country: None (occurrence: None)
  Receive Date: 20061212
  Receipt Date: 20061129
  Transmission Date: 20070319
  Serious: Yes (Life-Threatening, Hospitalization)
  Sender: FDA-Public Use
  Company Number: GBWYE699029NOV06

PATIENT
  Age: 67 Year
  Weight: 65 kg

DRUGS (4)
  1. ENBREL [Suspect]
     Indication: RHEUMATOID ARTHRITIS
     Route: 058
     Dates: start: 20040801
  2. OMEPRAZOLE [Concomitant]
     Indication: DYSPEPSIA
     Dosage: 20MG FREQUENCY UNKNOWN
     Route: 048
  3. OMEPRAZOLE [Concomitant]
     Indication: PEPTIC ULCER
  4. MELOXICAM [Concomitant]
     Indication: RHEUMATOID ARTHRITIS
     Dosage: 15MG FREQUENCY UNKNOWN

REACTIONS (2)
  - ARRHYTHMIA [None]
  - VENTRICULAR FIBRILLATION [None]
